FAERS Safety Report 5317700-1 (Version None)
Quarter: 2007Q2

REPORT INFORMATION
  Report Type: 
  Country: None (occurrence: None)
  Receive Date: 20070507
  Receipt Date: 20070426
  Transmission Date: 20071010
  Serious: Yes (Other)
  Sender: FDA-Public Use
  Company Number: ES-AMGEN-US218409

PATIENT
  Age: 47 Year
  Sex: Male

DRUGS (3)
  1. ENBREL [Suspect]
     Indication: PSORIASIS
     Route: 058
  2. ENBREL [Suspect]
     Dosage: UNKNOWN
  3. ISONIAZID [Suspect]
     Indication: PROPHYLAXIS
     Dosage: UNKNOWN

REACTIONS (1)
  - TRANSAMINASES INCREASED [None]
